FAERS Safety Report 6912617 (Version 5)
Quarter: 2013Q1

REPORT INFORMATION
  Report Type: Spontaneous
  Country: US (occurrence: US)
  Receive Date: 20090218
  Receipt Date: 20130319
  Transmission Date: 20140127
  Serious: Yes (Other)
  Sender: FDA-Public Use
  Company Number: US-ROCHE-595736

PATIENT
  Age: 36 Year
  Sex: Male
  Weight: 90.7 kg

DRUGS (3)
  1. ACCUTANE [Suspect]
     Indication: ACNE
     Dosage: PRESCRIPTION FILLED FOR ACCUTANE 20MG CAPSULE ON 24-AUG-01 AND 29 SEP-2001
     Route: 048
     Dates: start: 20010824, end: 20010913
  2. ACCUTANE [Suspect]
     Route: 048
     Dates: start: 20010914, end: 20011011
  3. ACCUTANE [Suspect]
     Route: 048
     Dates: start: 20011012, end: 200111

REACTIONS (5)
  - Crohn^s disease [Recovering/Resolving]
  - Inflammatory bowel disease [Unknown]
  - Depression [Unknown]
  - Colitis [Not Recovered/Not Resolved]
  - Intestinal stenosis [Unknown]
